FAERS Safety Report 8334222-4 (Version None)
Quarter: 2012Q2

REPORT INFORMATION
  Report Type: 
  Country: None (occurrence: None)
  Receive Date: 20120503
  Receipt Date: 20111205
  Transmission Date: 20120825
  Serious: Yes (Hospitalization)
  Sender: FDA-Public Use
  Company Number: FR-GLAXOSMITHKLINE-B0768147A

PATIENT
  Age: 52 Year
  Sex: Female
  Weight: 64 kg

DRUGS (2)
  1. LAPATINIB [Suspect]
     Indication: BREAST CANCER METASTATIC
     Dosage: 1000MG PER DAY
     Route: 048
     Dates: start: 20110222, end: 20110426
  2. HERCEPTIN [Concomitant]
     Indication: BREAST CANCER METASTATIC
     Dosage: 6MGK PER DAY
     Route: 042
     Dates: start: 20100414, end: 20110101

REACTIONS (3)
  - DRUG ADMINISTRATION ERROR [None]
  - DISEASE PROGRESSION [None]
  - CARDIAC FAILURE [None]
